FAERS Safety Report 9527236 (Version 3)
Quarter: 2014Q2

REPORT INFORMATION
  Report Type: Spontaneous
  Country: DE (occurrence: DE)
  Receive Date: 20130917
  Receipt Date: 20140509
  Transmission Date: 20141212
  Serious: Yes (Hospitalization)
  Sender: FDA-Public Use
  Company Number: DE-ROCHE-1273961

PATIENT
  Age: 1 Year
  Sex: Male
  Weight: 7.3 kg

DRUGS (10)
  1. RITUXIMAB [Suspect]
     Indication: POST TRANSPLANT LYMPHOPROLIFERATIVE DISORDER
     Dosage: SCHEDULED DOSES: 04-MAR-2013, 11-MAR-2013, 02-APR-2013, 23-APR-2013 AND 15-MAY-2013.
     Route: 065
     Dates: start: 20130224
  2. EVEROLIMUS [Suspect]
     Indication: LIVER TRANSPLANT
     Route: 065
     Dates: start: 20130123, end: 20130214
  3. PREDNISOLON [Concomitant]
  4. ASPIRIN [Concomitant]
  5. URSOFALK [Concomitant]
  6. ENALAPRIL [Concomitant]
  7. NATRIUM BICARBONATE [Concomitant]
  8. COTRIM [Concomitant]
  9. MODIGRAF [Concomitant]
  10. CLEXANE [Concomitant]

REACTIONS (1)
  - Organising pneumonia [Recovered/Resolved]
